FAERS Safety Report 17268888 (Version 1)
Quarter: 2020Q1

REPORT INFORMATION
  Report Type: Spontaneous
  Country: US (occurrence: US)
  Receive Date: 20200114
  Receipt Date: 20200114
  Transmission Date: 20200409
  Serious: No
  Sender: FDA-Public Use
  Company Number: None

PATIENT
  Age: 24 Year
  Sex: Female
  Weight: 69.75 kg

DRUGS (1)
  1. MIRVASO [Suspect]
     Active Substance: BRIMONIDINE TARTRATE
     Indication: ROSACEA
     Dosage: ?          QUANTITY:30 GM;?
     Route: 062
     Dates: start: 20200108, end: 20200112

REACTIONS (5)
  - Condition aggravated [None]
  - Flushing [None]
  - Chemical burn [None]
  - Application site erythema [None]
  - Application site burn [None]

NARRATIVE: CASE EVENT DATE: 20200112
